FAERS Safety Report 20604931 (Version 40)
Quarter: 2025Q2

REPORT INFORMATION
  Report Type: Spontaneous
  Country: PT (occurrence: PT)
  Receive Date: 20220317
  Receipt Date: 20250620
  Transmission Date: 20250716
  Serious: Yes (Death, Other)
  Sender: NODEN PHARMA
  Company Number: MASTER-EVHUMAN-20220303150624_WJPWKP

PATIENT
  Age: 61 Year

DRUGS (142)
  1. ALISKIREN [Suspect]
     Active Substance: ALISKIREN
     Indication: Product used for unknown indication
  2. EZETIMIBE [Suspect]
     Active Substance: EZETIMIBE
     Indication: Product used for unknown indication
     Route: 048
  3. EZETIMIBE [Suspect]
     Active Substance: EZETIMIBE
  4. HYDROCHLOROTHIAZIDE [Suspect]
     Active Substance: HYDROCHLOROTHIAZIDE
     Indication: Product used for unknown indication
  5. HYDROCHLOROTHIAZIDE [Suspect]
     Active Substance: HYDROCHLOROTHIAZIDE
  6. DUTASTERIDE [Suspect]
     Active Substance: DUTASTERIDE
     Indication: Product used for unknown indication
  7. DUTASTERIDE [Suspect]
     Active Substance: DUTASTERIDE
  8. ATORVASTATIN CALCIUM [Suspect]
     Active Substance: ATORVASTATIN CALCIUM
     Indication: Product used for unknown indication
  9. ATORVASTATIN CALCIUM [Suspect]
     Active Substance: ATORVASTATIN CALCIUM
  10. ETANERCEPT [Suspect]
     Active Substance: ETANERCEPT
     Indication: Blood pressure abnormal
  11. FLUVASTATIN SODIUM [Suspect]
     Active Substance: FLUVASTATIN SODIUM
     Indication: Product used for unknown indication
  12. FLUVASTATIN SODIUM [Suspect]
     Active Substance: FLUVASTATIN SODIUM
  13. POTASSIUM IODIDE [Suspect]
     Active Substance: POTASSIUM IODIDE
     Indication: Product used for unknown indication
  14. PROPRANOLOL [Suspect]
     Active Substance: PROPRANOLOL HYDROCHLORIDE
     Indication: Product used for unknown indication
  15. ACETAMINOPHEN [Suspect]
     Active Substance: ACETAMINOPHEN
     Indication: Product used for unknown indication
  16. ACETAMINOPHEN [Suspect]
     Active Substance: ACETAMINOPHEN
     Route: 048
  17. EXEMESTANE [Suspect]
     Active Substance: EXEMESTANE
     Indication: Product used for unknown indication
  18. DOMPERIDONE\DOMPERIDONE MALEATE [Suspect]
     Active Substance: DOMPERIDONE\DOMPERIDONE MALEATE
     Indication: Product used for unknown indication
  19. CILAZAPRIL ANHYDROUS [Suspect]
     Active Substance: CILAZAPRIL ANHYDROUS
     Indication: Product used for unknown indication
  20. GLUCOSAMINE SULFATE [Suspect]
     Active Substance: GLUCOSAMINE SULFATE
     Indication: Product used for unknown indication
  21. NORFLOXACIN [Suspect]
     Active Substance: NORFLOXACIN
     Indication: Product used for unknown indication
  22. NORFLOXACIN [Suspect]
     Active Substance: NORFLOXACIN
  23. INDOMETHACIN SODIUM [Suspect]
     Active Substance: INDOMETHACIN SODIUM
     Indication: Product used for unknown indication
  24. INDOMETHACIN SODIUM [Suspect]
     Active Substance: INDOMETHACIN SODIUM
     Route: 005
  25. PREGABALIN [Suspect]
     Active Substance: PREGABALIN
     Indication: Product used for unknown indication
  26. PREGABALIN [Suspect]
     Active Substance: PREGABALIN
  27. PREGABALIN [Suspect]
     Active Substance: PREGABALIN
  28. PREGABALIN [Suspect]
     Active Substance: PREGABALIN
  29. IMATINIB [Suspect]
     Active Substance: IMATINIB
     Indication: Product used for unknown indication
  30. PITAVASTATIN [Suspect]
     Active Substance: PITAVASTATIN
     Indication: Product used for unknown indication
     Route: 048
  31. PITAVASTATIN [Suspect]
     Active Substance: PITAVASTATIN
  32. SIMVASTATIN [Suspect]
     Active Substance: SIMVASTATIN
     Indication: Product used for unknown indication
     Route: 048
  33. SIMVASTATIN [Suspect]
     Active Substance: SIMVASTATIN
  34. SERTRALINE HYDROCHLORIDE [Suspect]
     Active Substance: SERTRALINE HYDROCHLORIDE
     Indication: Product used for unknown indication
  35. SERTRALINE HYDROCHLORIDE [Suspect]
     Active Substance: SERTRALINE HYDROCHLORIDE
  36. SERTRALINE HYDROCHLORIDE [Suspect]
     Active Substance: SERTRALINE HYDROCHLORIDE
  37. LEVOCETIRIZINE DIHYDROCHLORIDE [Suspect]
     Active Substance: LEVOCETIRIZINE DIHYDROCHLORIDE
     Indication: Product used for unknown indication
  38. ACECLOFENAC [Suspect]
     Active Substance: ACECLOFENAC
     Indication: Product used for unknown indication
  39. AGOMELATINE [Suspect]
     Active Substance: AGOMELATINE
     Indication: Product used for unknown indication
  40. RIBAVIRIN [Suspect]
     Active Substance: RIBAVIRIN
     Indication: Product used for unknown indication
  41. RIBAVIRIN [Suspect]
     Active Substance: RIBAVIRIN
     Route: 048
  42. RIBAVIRIN [Suspect]
     Active Substance: RIBAVIRIN
  43. ZOLEDRONIC ACID [Suspect]
     Active Substance: ZOLEDRONIC ACID
     Indication: Product used for unknown indication
  44. ZOLEDRONIC ACID [Suspect]
     Active Substance: ZOLEDRONIC ACID
  45. LETROZOLE [Suspect]
     Active Substance: LETROZOLE
     Indication: Product used for unknown indication
  46. LETROZOLE [Suspect]
     Active Substance: LETROZOLE
  47. LETROZOLE [Suspect]
     Active Substance: LETROZOLE
  48. BRINZOLAMIDE [Suspect]
     Active Substance: BRINZOLAMIDE
     Indication: Product used for unknown indication
  49. BRINZOLAMIDE [Suspect]
     Active Substance: BRINZOLAMIDE
  50. ASPIRIN\PENTAZOCINE [Suspect]
     Active Substance: ASPIRIN\PENTAZOCINE
     Indication: Product used for unknown indication
     Route: 048
  51. ASPIRIN\PENTAZOCINE [Suspect]
     Active Substance: ASPIRIN\PENTAZOCINE
  52. INDOMETHACIN [Suspect]
     Active Substance: INDOMETHACIN
     Indication: Product used for unknown indication
  53. INDOMETHACIN [Suspect]
     Active Substance: INDOMETHACIN
  54. INDOMETHACIN [Suspect]
     Active Substance: INDOMETHACIN
  55. TRAMADOL HYDROCHLORIDE [Suspect]
     Active Substance: TRAMADOL HYDROCHLORIDE
     Indication: Product used for unknown indication
     Route: 062
  56. TRAMADOL HYDROCHLORIDE [Suspect]
     Active Substance: TRAMADOL HYDROCHLORIDE
  57. CHOLECALCIFEROL [Suspect]
     Active Substance: CHOLECALCIFEROL
     Indication: Product used for unknown indication
  58. CHOLECALCIFEROL [Suspect]
     Active Substance: CHOLECALCIFEROL
  59. SODIUM PICOSULFATE [Suspect]
     Active Substance: SODIUM PICOSULFATE
     Indication: Product used for unknown indication
     Route: 062
  60. SODIUM PICOSULFATE [Suspect]
     Active Substance: SODIUM PICOSULFATE
  61. ESCITALOPRAM OXALATE [Suspect]
     Active Substance: ESCITALOPRAM OXALATE
     Indication: Product used for unknown indication
     Route: 048
  62. IMATINIB [Suspect]
     Active Substance: IMATINIB
     Indication: Product used for unknown indication
  63. HYDROMORPHONE HYDROCHLORIDE [Suspect]
     Active Substance: HYDROMORPHONE HYDROCHLORIDE
     Indication: Product used for unknown indication
     Route: 048
  64. PRAVASTATIN SODIUM [Suspect]
     Active Substance: PRAVASTATIN SODIUM
     Indication: Product used for unknown indication
  65. PRAVASTATIN SODIUM [Suspect]
     Active Substance: PRAVASTATIN SODIUM
  66. ALENDRONATE SODIUM [Suspect]
     Active Substance: ALENDRONATE SODIUM
     Indication: Product used for unknown indication
     Route: 048
  67. ALENDRONATE SODIUM [Suspect]
     Active Substance: ALENDRONATE SODIUM
  68. FLUOXETINE HYDROCHLORIDE [Suspect]
     Active Substance: FLUOXETINE HYDROCHLORIDE
     Indication: Product used for unknown indication
  69. TELMISARTAN [Suspect]
     Active Substance: TELMISARTAN
     Indication: Product used for unknown indication
  70. TELMISARTAN [Suspect]
     Active Substance: TELMISARTAN
  71. VORTIOXETINE HYDROBROMIDE [Suspect]
     Active Substance: VORTIOXETINE HYDROBROMIDE
     Indication: Product used for unknown indication
  72. LEDIPASVIR [Suspect]
     Active Substance: LEDIPASVIR
     Indication: Product used for unknown indication
  73. VENLAFAXINE HYDROCHLORIDE [Suspect]
     Active Substance: VENLAFAXINE HYDROCHLORIDE
     Indication: Product used for unknown indication
  74. VENLAFAXINE HYDROCHLORIDE [Suspect]
     Active Substance: VENLAFAXINE HYDROCHLORIDE
  75. VENLAFAXINE HYDROCHLORIDE [Suspect]
     Active Substance: VENLAFAXINE HYDROCHLORIDE
  76. PENTOXIFYLLINE [Suspect]
     Active Substance: PENTOXIFYLLINE
     Indication: Product used for unknown indication
  77. PENTOXIFYLLINE [Suspect]
     Active Substance: PENTOXIFYLLINE
     Route: 065
  78. FENOFIBRATE [Suspect]
     Active Substance: FENOFIBRATE
     Indication: Product used for unknown indication
  79. FENOFIBRATE [Suspect]
     Active Substance: FENOFIBRATE
     Route: 048
  80. VERAPAMIL HYDROCHLORIDE [Suspect]
     Active Substance: VERAPAMIL HYDROCHLORIDE
     Indication: Product used for unknown indication
  81. TAMSULOSIN HYDROCHLORIDE [Suspect]
     Active Substance: TAMSULOSIN HYDROCHLORIDE
     Indication: Product used for unknown indication
     Route: 062
  82. TAMSULOSIN HYDROCHLORIDE [Suspect]
     Active Substance: TAMSULOSIN HYDROCHLORIDE
  83. ENOXAPARIN SODIUM [Suspect]
     Active Substance: ENOXAPARIN SODIUM
     Indication: Product used for unknown indication
  84. ENOXAPARIN SODIUM [Suspect]
     Active Substance: ENOXAPARIN SODIUM
  85. NIMESULIDE [Suspect]
     Active Substance: NIMESULIDE
     Indication: Product used for unknown indication
  86. MIRTAZAPINE [Suspect]
     Active Substance: MIRTAZAPINE
     Indication: Product used for unknown indication
     Route: 048
  87. MIRTAZAPINE [Suspect]
     Active Substance: MIRTAZAPINE
  88. BISOPROLOL FUMARATE [Suspect]
     Active Substance: BISOPROLOL FUMARATE
     Indication: Product used for unknown indication
  89. BISOPROLOL FUMARATE [Suspect]
     Active Substance: BISOPROLOL FUMARATE
     Route: 065
  90. HUMAN IMMUNOGLOBULIN G [Suspect]
     Active Substance: HUMAN IMMUNOGLOBULIN G
     Indication: Product used for unknown indication
     Dosage: 50 MILLIGRAM PER CUBIC METRE
  91. CELECOXIB [Suspect]
     Active Substance: CELECOXIB
     Indication: Product used for unknown indication
  92. CELECOXIB [Suspect]
     Active Substance: CELECOXIB
  93. CELECOXIB [Suspect]
     Active Substance: CELECOXIB
  94. CELECOXIB [Suspect]
     Active Substance: CELECOXIB
  95. CELECOXIB [Suspect]
     Active Substance: CELECOXIB
  96. ADALIMUMAB [Suspect]
     Active Substance: ADALIMUMAB
     Indication: Product used for unknown indication
     Route: 058
  97. ADALIMUMAB [Suspect]
     Active Substance: ADALIMUMAB
  98. ADALIMUMAB [Suspect]
     Active Substance: ADALIMUMAB
  99. SOFOSBUVIR [Suspect]
     Active Substance: SOFOSBUVIR
     Indication: Product used for unknown indication
  100. PRAVASTATIN [Suspect]
     Active Substance: PRAVASTATIN
     Indication: Product used for unknown indication
  101. DONEPEZIL HYDROCHLORIDE [Suspect]
     Active Substance: DONEPEZIL HYDROCHLORIDE
     Indication: Product used for unknown indication
     Route: 048
  102. CODEINE [Suspect]
     Active Substance: CODEINE
     Indication: Product used for unknown indication
  103. BISOPROLOL [Suspect]
     Active Substance: BISOPROLOL
     Indication: Product used for unknown indication
  104. NITROGLYCERIN [Suspect]
     Active Substance: NITROGLYCERIN
     Indication: Product used for unknown indication
  105. NITROGLYCERIN [Suspect]
     Active Substance: NITROGLYCERIN
  106. TOCILIZUMAB [Suspect]
     Active Substance: TOCILIZUMAB
     Indication: Product used for unknown indication
  107. DILTIAZEM [Suspect]
     Active Substance: DILTIAZEM
     Indication: Product used for unknown indication
  108. BUPRENORPHINE [Suspect]
     Active Substance: BUPRENORPHINE
     Indication: Product used for unknown indication
     Route: 062
  109. GINKGO [Suspect]
     Active Substance: GINKGO
     Indication: Product used for unknown indication
  110. GINKGO [Suspect]
     Active Substance: GINKGO
     Route: 065
  111. VENLAFAXINE [Suspect]
     Active Substance: VENLAFAXINE HYDROCHLORIDE
     Indication: Product used for unknown indication
  112. ESOMEPRAZOLE MAGNESIUM [Suspect]
     Active Substance: ESOMEPRAZOLE MAGNESIUM
     Indication: Product used for unknown indication
  113. NILOTINIB HYDROCHLORIDE MONOHYDRATE [Suspect]
     Active Substance: NILOTINIB HYDROCHLORIDE MONOHYDRATE
     Indication: Product used for unknown indication
  114. VERAPAMIL [Suspect]
     Active Substance: VERAPAMIL HYDROCHLORIDE
     Indication: Product used for unknown indication
  115. ANASTROZOLE [Suspect]
     Active Substance: ANASTROZOLE
     Indication: Product used for unknown indication
  116. DOCETAXEL [Suspect]
     Active Substance: DOCETAXEL
     Indication: Product used for unknown indication
  117. DOCETAXEL [Suspect]
     Active Substance: DOCETAXEL
  118. DOCETAXEL [Suspect]
     Active Substance: DOCETAXEL
  119. IBANDRONIC ACID [Suspect]
     Active Substance: IBANDRONIC ACID
     Indication: Product used for unknown indication
  120. MYCOPHENOLATE SODIUM [Suspect]
     Active Substance: MYCOPHENOLATE SODIUM
     Indication: Product used for unknown indication
  121. MYCOPHENOLATE SODIUM [Suspect]
     Active Substance: MYCOPHENOLATE SODIUM
  122. MYCOPHENOLATE SODIUM [Suspect]
     Active Substance: MYCOPHENOLATE SODIUM
  123. HYDROMORPHONE HYDROCHLORIDE [Suspect]
     Active Substance: HYDROMORPHONE HYDROCHLORIDE
     Indication: Product used for unknown indication
  124. XYZAL [Suspect]
     Active Substance: LEVOCETIRIZINE DIHYDROCHLORIDE
     Indication: Product used for unknown indication
  125. XYZAL [Suspect]
     Active Substance: LEVOCETIRIZINE DIHYDROCHLORIDE
     Route: 065
  126. POTASSIUM IODIDE [Suspect]
     Active Substance: POTASSIUM IODIDE
     Indication: Product used for unknown indication
  127. VENLAFAXINE HYDROCHLORIDE [Suspect]
     Active Substance: VENLAFAXINE HYDROCHLORIDE
     Indication: Product used for unknown indication
  128. NORFLOXACIN [Suspect]
     Active Substance: NORFLOXACIN
     Indication: Product used for unknown indication
  129. DOMPERIDONE MALEATE [Suspect]
     Active Substance: DOMPERIDONE MALEATE
     Indication: Product used for unknown indication
  130. IODINE [Suspect]
     Active Substance: IODINE
     Indication: Product used for unknown indication
  131. CALTRATE WITH VITAMIN D [Suspect]
     Active Substance: CALCIUM CARBONATE\CHOLECALCIFEROL
     Indication: Product used for unknown indication
  132. CALTRATE WITH VITAMIN D [Suspect]
     Active Substance: CALCIUM CARBONATE\CHOLECALCIFEROL
  133. CALTRATE WITH VITAMIN D [Suspect]
     Active Substance: CALCIUM CARBONATE\CHOLECALCIFEROL
  134. RABIES IMMUNE GLOBULIN (HUMAN) [Suspect]
     Active Substance: RABIES IMMUNE GLOBULIN (HUMAN)
     Indication: Product used for unknown indication
  135. PROZAC [Suspect]
     Active Substance: FLUOXETINE HYDROCHLORIDE
     Indication: Product used for unknown indication
  136. IODINE [Suspect]
     Active Substance: IODINE
     Indication: Product used for unknown indication
  137. NAUZELIN [Suspect]
     Active Substance: DOMPERIDONE
     Indication: Product used for unknown indication
  138. ZOMETA [Suspect]
     Active Substance: ZOLEDRONIC ACID
     Indication: Product used for unknown indication
  139. CELEBREX [Suspect]
     Active Substance: CELECOXIB
     Indication: Product used for unknown indication
  140. HERBALS [Suspect]
     Active Substance: HERBALS
     Indication: Product used for unknown indication
  141. GEMFIBROZIL [Suspect]
     Active Substance: GEMFIBROZIL
     Indication: Product used for unknown indication
  142. ESIDREX [Suspect]
     Active Substance: HYDROCHLOROTHIAZIDE
     Indication: Product used for unknown indication

REACTIONS (47)
  - Drug interaction [Fatal]
  - Drug interaction [Fatal]
  - Coma [Fatal]
  - Haematemesis [Fatal]
  - Sepsis [Fatal]
  - Diplopia [Fatal]
  - Blood pressure increased [Fatal]
  - Blindness [Fatal]
  - Urinary tract disorder [Fatal]
  - Chills [Fatal]
  - Myalgia [Fatal]
  - Eye pain [Fatal]
  - Cardio-respiratory arrest [Fatal]
  - Photophobia [Fatal]
  - Tinnitus [Fatal]
  - Vision blurred [Fatal]
  - Haemorrhagic stroke [Fatal]
  - Haematuria [Fatal]
  - Amaurosis fugax [Fatal]
  - Ascites [Fatal]
  - Ocular discomfort [Fatal]
  - Head discomfort [Fatal]
  - Fall [Fatal]
  - Tachycardia [Fatal]
  - Malaise [Fatal]
  - Insomnia [Fatal]
  - Altered state of consciousness [Fatal]
  - Generalised oedema [Fatal]
  - Headache [Fatal]
  - Somnolence [Fatal]
  - Dyspnoea [Fatal]
  - Decreased appetite [Fatal]
  - Pyrexia [Fatal]
  - Arthralgia [Fatal]
  - Fatigue [Fatal]
  - Abdominal pain upper [Fatal]
  - Abdominal pain [Fatal]
  - Presyncope [Fatal]
  - Vomiting [Fatal]
  - Dizziness [Fatal]
  - Cough [Fatal]
  - Syncope [Fatal]
  - Asthenia [Fatal]
  - Diarrhoea [Fatal]
  - Pruritus [Fatal]
  - Nausea [Fatal]
  - Off label use [Unknown]
